FAERS Safety Report 13498087 (Version 1)
Quarter: 2017Q2

REPORT INFORMATION
  Report Type: Spontaneous
  Country: DE (occurrence: DE)
  Receive Date: 20170428
  Receipt Date: 20170428
  Transmission Date: 20170830
  Serious: Yes (Life-Threatening, Other)
  Sender: FDA-Public Use
  Company Number: DE-BAUSCH-BL-2017-011162

PATIENT
  Age: 2 Day
  Sex: Female

DRUGS (16)
  1. FOLINIC ACID [Suspect]
     Active Substance: LEUCOVORIN
     Indication: PARTIAL SEIZURES
  2. PYRIDOXAL PHOSPHATE [Suspect]
     Active Substance: PYRIDOXAL PHOSPHATE
     Indication: PARTIAL SEIZURES
  3. PHENOBARBITAL. [Suspect]
     Active Substance: PHENOBARBITAL
     Indication: PARTIAL SEIZURES
  4. LEVETIRACETAM. [Suspect]
     Active Substance: LEVETIRACETAM
     Indication: PARTIAL SEIZURES
  5. PYRIDOXAL PHOSPHATE [Suspect]
     Active Substance: PYRIDOXAL PHOSPHATE
     Indication: MYOCLONIC EPILEPSY
     Route: 065
  6. LEVETIRACETAM. [Suspect]
     Active Substance: LEVETIRACETAM
     Indication: MYOCLONIC EPILEPSY
     Route: 065
  7. DEXAMETHASONE. [Suspect]
     Active Substance: DEXAMETHASONE
     Indication: PARTIAL SEIZURES
  8. VITAMIN B6 [Suspect]
     Active Substance: PYRIDOXINE HYDROCHLORIDE
     Indication: PARTIAL SEIZURES
  9. ZONISAMIDE. [Suspect]
     Active Substance: ZONISAMIDE
     Indication: MYOCLONIC EPILEPSY
     Route: 065
  10. ZONISAMIDE. [Suspect]
     Active Substance: ZONISAMIDE
     Indication: PARTIAL SEIZURES
  11. VIGABATRIN. [Suspect]
     Active Substance: VIGABATRIN
     Indication: PARTIAL SEIZURES
  12. FOLINIC ACID [Suspect]
     Active Substance: LEUCOVORIN
     Indication: MYOCLONIC EPILEPSY
     Route: 065
  13. DEXAMETHASONE. [Suspect]
     Active Substance: DEXAMETHASONE
     Indication: MYOCLONIC EPILEPSY
     Route: 065
  14. PHENOBARBITAL. [Suspect]
     Active Substance: PHENOBARBITAL
     Indication: MYOCLONIC EPILEPSY
     Route: 065
  15. VITAMIN B6 [Suspect]
     Active Substance: PYRIDOXINE HYDROCHLORIDE
     Indication: MYOCLONIC EPILEPSY
     Route: 065
  16. VIGABATRIN. [Suspect]
     Active Substance: VIGABATRIN
     Indication: MYOCLONIC EPILEPSY
     Route: 065

REACTIONS (1)
  - Drug ineffective [Unknown]
